FAERS Safety Report 20779696 (Version 1)
Quarter: 2022Q2

REPORT INFORMATION
  Report Type: Spontaneous
  Country: US (occurrence: US)
  Receive Date: 20220503
  Receipt Date: 20220503
  Transmission Date: 20220721
  Serious: Yes (Hospitalization, Other)
  Sender: FDA-Public Use
  Company Number: US-PFIZER INC-202200634746

PATIENT
  Age: 90 Year
  Sex: Male

DRUGS (1)
  1. PAXLOVID [Suspect]
     Active Substance: NIRMATRELVIR\RITONAVIR
     Indication: COVID-19 treatment
     Dosage: UNK

REACTIONS (10)
  - Pneumonia [Unknown]
  - Asthenia [Unknown]
  - Confusional state [Unknown]
  - Agitation [Unknown]
  - Somnolence [Unknown]
  - Emotional disorder [Unknown]
  - Dysstasia [Unknown]
  - Movement disorder [Unknown]
  - Hypersensitivity [Unknown]
  - Incorrect dose administered [Unknown]
